FAERS Safety Report 18235151 (Version 1)
Quarter: 2020Q3

REPORT INFORMATION
  Report Type: Spontaneous
  Country: US (occurrence: US)
  Receive Date: 20200904
  Receipt Date: 20200904
  Transmission Date: 20201103
  Serious: No
  Sender: FDA-Public Use
  Company Number: US-KOWA-19US002406

PATIENT
  Sex: Female

DRUGS (4)
  1. FENOFIBRATE. [Suspect]
     Active Substance: FENOFIBRATE
     Dosage: UNK
     Route: 061
  2. TESTOSTERONE. [Suspect]
     Active Substance: TESTOSTERONE
     Indication: EXPOSURE VIA BODY FLUID
     Route: 067
  3. FENOFIBRATE. [Suspect]
     Active Substance: FENOFIBRATE
     Indication: EXPOSURE VIA BODY FLUID
     Dosage: 145 UNK
     Route: 067
  4. LIVALO [Suspect]
     Active Substance: PITAVASTATIN CALCIUM
     Indication: EXPOSURE VIA BODY FLUID
     Dosage: UNK
     Route: 067

REACTIONS (6)
  - Vulvovaginal erythema [Recovered/Resolved]
  - Vulvovaginal burning sensation [Recovered/Resolved]
  - Erythema [Recovered/Resolved]
  - Genital blister [Recovered/Resolved]
  - Vulvovaginal pain [Recovered/Resolved]
  - Exposure via body fluid [Recovering/Resolving]
